FAERS Safety Report 10144832 (Version 1)
Quarter: 2014Q2

REPORT INFORMATION
  Report Type: Spontaneous
  Country: US (occurrence: US)
  Receive Date: 20140430
  Receipt Date: 20140430
  Transmission Date: 20141212
  Serious: No
  Sender: FDA-Public Use
  Company Number: US-SANOFI-AVENTIS-2013SA045032

PATIENT
  Age: 63 Year
  Sex: Male

DRUGS (2)
  1. DEMEROL [Suspect]
  2. ANTINEOPLASTIC AGENTS [Suspect]
     Indication: RENAL CANCER
     Dates: start: 20121105, end: 20130308

REACTIONS (2)
  - Disease progression [Unknown]
  - Drug hypersensitivity [Unknown]
